FAERS Safety Report 8898913 (Version 1)
Quarter: 2012Q4

REPORT INFORMATION
  Report Type: 
  Country: US (occurrence: US)
  Receive Date: 20121108
  Receipt Date: 20121108
  Transmission Date: 20130627
  Serious: No
  Sender: FDA-Public Use
  Company Number: US-AMGEN-USASP2012026460

PATIENT
  Age: 50 Year
  Sex: Female
  Weight: 56.69 kg

DRUGS (6)
  1. ENBREL [Suspect]
     Indication: RHEUMATOID ARTHRITIS
     Dosage: 50 mg, qwk
     Route: 058
     Dates: start: 20120330
  2. CYMBALTA [Concomitant]
     Dosage: 20 mg, UNK
  3. LISINOPRIL [Concomitant]
     Dosage: 5 mg, UNK
  4. HYDROXYCHLOROQUINE [Concomitant]
     Dosage: 200 mg, UNK
  5. MULTIVITAMIN                       /00097801/ [Concomitant]
  6. SULFASALAZIN [Concomitant]
     Dosage: 500 mg, UNK

REACTIONS (5)
  - Nausea [Recovered/Resolved]
  - Fatigue [Unknown]
  - Myalgia [Unknown]
  - Anxiety [Unknown]
  - Insomnia [Unknown]
